FAERS Safety Report 4437437-0 (Version None)
Quarter: 2004Q3

REPORT INFORMATION
  Report Type: 
  Country: None (occurrence: None)
  Receive Date: 20040827
  Receipt Date: 20040823
  Transmission Date: 20050211
  Serious: Yes (Death)
  Sender: FDA-Public Use
  Company Number: HQWYE479423AUG04

PATIENT
  Age: 79 Year
  Sex: Male

DRUGS (1)
  1. MINOCIN [Suspect]
     Indication: PNEUMONIA
     Dosage: 200 MG/DAY ORAL
     Route: 048
     Dates: start: 20040816, end: 20040819

REACTIONS (1)
  - INTERSTITIAL LUNG DISEASE [None]
